FAERS Safety Report 8031467-8 (Version None)
Quarter: 2012Q1

REPORT INFORMATION
  Report Type: 
  Country: None (occurrence: None)
  Receive Date: 20120109
  Receipt Date: 20120105
  Transmission Date: 20120608
  Serious: Yes (Hospitalization)
  Sender: FDA-Public Use
  Company Number: GB-ABBOTT-12P-167-0889519-00

PATIENT
  Sex: Female

DRUGS (2)
  1. HUMIRA [Suspect]
     Indication: RHEUMATOID ARTHRITIS
  2. HUMIRA [Suspect]
     Indication: OSTEOPOROSIS

REACTIONS (4)
  - OFF LABEL USE [None]
  - ADVERSE DRUG REACTION [None]
  - ABASIA [None]
  - OEDEMA PERIPHERAL [None]
